FAERS Safety Report 19680830 (Version 1)
Quarter: 2021Q3

REPORT INFORMATION
  Report Type: Spontaneous
  Country: FR (occurrence: FR)
  Receive Date: 20210810
  Receipt Date: 20210810
  Transmission Date: 20211014
  Serious: Yes (Other)
  Sender: FDA-Public Use
  Company Number: FR-JNJFOC-20210814412

PATIENT
  Age: 48 Year
  Sex: Female
  Weight: 60 kg

DRUGS (1)
  1. RISPERDAL [Suspect]
     Active Substance: RISPERIDONE
     Indication: HALLUCINATION, AUDITORY
     Route: 065
     Dates: end: 20210530

REACTIONS (1)
  - Encephalopathy [Recovered/Resolved]
